FAERS Safety Report 10072528 (Version 1)
Quarter: 2014Q2

REPORT INFORMATION
  Report Type: Report from Study
  Country: ZA (occurrence: ZA)
  Receive Date: 20140411
  Receipt Date: 20140411
  Transmission Date: 20141212
  Serious: Yes (Death, Hospitalization, Disabling)
  Sender: FDA-Public Use
  Company Number: ZA-SA-2014SA040080

PATIENT
  Age: 26 Year
  Sex: Male
  Weight: 49.5 kg

DRUGS (5)
  1. PYRAZINAMIDE [Suspect]
     Indication: PULMONARY TUBERCULOSIS
     Route: 065
     Dates: start: 20110707, end: 20110716
  2. RIFAMPICIN [Suspect]
     Indication: PULMONARY TUBERCULOSIS
     Route: 065
     Dates: start: 20110707, end: 20110716
  3. ISONIAZID [Suspect]
     Indication: PULMONARY TUBERCULOSIS
     Route: 065
     Dates: start: 20110707, end: 20110716
  4. MOXIFLOXACIN [Suspect]
     Indication: PULMONARY TUBERCULOSIS
     Route: 048
     Dates: start: 20110707, end: 20110716
  5. PLACEBO [Suspect]
     Indication: PULMONARY TUBERCULOSIS
     Route: 065
     Dates: start: 20110707, end: 20110716

REACTIONS (4)
  - Pulmonary tuberculosis [Fatal]
  - Diplegia [Unknown]
  - Myelitis transverse [Unknown]
  - Muscular weakness [Not Recovered/Not Resolved]
